FAERS Safety Report 4759119-8 (Version None)
Quarter: 2005Q3

REPORT INFORMATION
  Report Type: 
  Country: None (occurrence: None)
  Receive Date: 20050831
  Receipt Date: 20050817
  Transmission Date: 20060218
  Serious: No
  Sender: FDA-Public Use
  Company Number: 02100-JPN-05-0385

PATIENT
  Age: 68 Year
  Sex: Male

DRUGS (4)
  1. CILOSTAZOL [Suspect]
     Indication: CEREBRAL INFARCTION
     Dosage: 200 MG ORAL
     Route: 048
     Dates: start: 20050816, end: 20050816
  2. TAMULOSIN HYDROCHLORIDE [Concomitant]
  3. PIPSISSEWA EXTRACT/JAPANESE ASPEN EXTRACT COMBINE [Concomitant]
  4. CERNITIN POLLEN EXTRACT [Concomitant]

REACTIONS (4)
  - BACK PAIN [None]
  - BLOOD PRESSURE DECREASED [None]
  - CHEST DISCOMFORT [None]
  - NECK PAIN [None]
